FAERS Safety Report 16891103 (Version 1)
Quarter: 2019Q4

REPORT INFORMATION
  Report Type: Spontaneous
  Country: US (occurrence: US)
  Receive Date: 20190812
  Receipt Date: 20190812
  Transmission Date: 20200122
  Serious: No
  Sender: FDA-Public Use
  Company Number: None

PATIENT
  Age: 58 Year
  Sex: Female

DRUGS (1)
  1. COSENTYX [Suspect]
     Active Substance: SECUKINUMAB
     Dates: start: 2018

REACTIONS (4)
  - Therapy non-responder [None]
  - Weight increased [None]
  - Elbow operation [None]
  - Depression [None]

NARRATIVE: CASE EVENT DATE: 20181215
